FAERS Safety Report 9646398 (Version 1)
Quarter: 2013Q4

REPORT INFORMATION
  Report Type: Spontaneous
  Country: BR (occurrence: BR)
  Receive Date: 20131025
  Receipt Date: 20131025
  Transmission Date: 20140711
  Serious: Yes (Other)
  Sender: FDA-Public Use
  Company Number: BR-BAXTER-2013BAX041618

PATIENT
  Age: 31 Year
  Sex: Female

DRUGS (3)
  1. GENUXAL [Suspect]
     Indication: PEMPHIGUS
     Route: 042
  2. PREDNISONE [Suspect]
     Indication: PEMPHIGUS
     Route: 048
  3. PREDNISONE [Suspect]

REACTIONS (2)
  - Stevens-Johnson syndrome [Unknown]
  - Disease recurrence [Unknown]
